FAERS Safety Report 8060377-5 (Version None)
Quarter: 2012Q1

REPORT INFORMATION
  Report Type: 
  Country: None (occurrence: None)
  Receive Date: 20120120
  Receipt Date: 20120119
  Transmission Date: 20120608
  Serious: Yes (Hospitalization)
  Sender: FDA-Public Use
  Company Number: CA-BAYER-2011-121119

PATIENT
  Age: 35 Year
  Sex: Female
  Weight: 63 kg

DRUGS (1)
  1. MAGNEVIST [Suspect]
     Indication: NUCLEAR MAGNETIC RESONANCE IMAGING
     Dosage: 20 ML, ONCE
     Route: 042
     Dates: start: 20110731

REACTIONS (3)
  - DYSPHAGIA [None]
  - THROAT IRRITATION [None]
  - THROAT TIGHTNESS [None]
